FAERS Safety Report 5863438-1 (Version None)
Quarter: 2008Q3

REPORT INFORMATION
  Report Type: 
  Country: None (occurrence: None)
  Receive Date: 20080828
  Receipt Date: 20080822
  Transmission Date: 20090109
  Serious: Yes (Other)
  Sender: FDA-Public Use
  Company Number: PHEH2008US07429

PATIENT
  Sex: Male

DRUGS (6)
  1. ENABLEX [Suspect]
     Indication: URINARY RETENTION
     Dosage: 7.5 MG, QD
     Route: 048
     Dates: start: 20080813
  2. PRAZOSIN HCL [Concomitant]
     Dosage: 1 MG, QID
  3. AMLODIPINE [Concomitant]
     Dosage: 5 MG, QD
  4. ALLOPURINOL [Concomitant]
     Indication: GOUT
     Dosage: 300 MG, UNK
  5. ZOCOR [Concomitant]
     Indication: BLOOD CHOLESTEROL INCREASED
     Dosage: UNK, UNK
  6. TYLENOL (CAPLET) [Concomitant]
     Indication: ARTHRALGIA
     Dosage: UNK, PRN

REACTIONS (1)
  - HYPOTENSION [None]
